FAERS Safety Report 8374859-X (Version None)
Quarter: 2012Q2

REPORT INFORMATION
  Report Type: 
  Country: None (occurrence: None)
  Receive Date: 20120521
  Receipt Date: 20120502
  Transmission Date: 20120825
  Serious: No
  Sender: FDA-Public Use
  Company Number: US-ASTRAZENECA-2012SE28805

PATIENT
  Age: 35 Year
  Sex: Male

DRUGS (1)
  1. NEXIUM [Suspect]
     Route: 048

REACTIONS (6)
  - ABDOMINAL DISTENSION [None]
  - APHAGIA [None]
  - INSOMNIA [None]
  - THERMAL BURN [None]
  - IRRITABILITY [None]
  - INTENTIONAL DRUG MISUSE [None]
